FAERS Safety Report 10037308 (Version 1)
Quarter: 2014Q1

REPORT INFORMATION
  Report Type: Spontaneous
  Country: FR (occurrence: None)
  Receive Date: 20140324
  Receipt Date: 20140324
  Transmission Date: 20141002
  Serious: Yes (Other)
  Sender: FDA-Public Use
  Company Number: B0975933A

PATIENT
  Age: 51 Year
  Sex: Female

DRUGS (2)
  1. FLUTICASONE PROPIONATE+SALMETEROL XINAFOATE [Suspect]
     Indication: ASTHMA
     Dosage: UNK / UNK / INHALED
  2. POSACONAZOLE [Suspect]
     Indication: ASPERGILLUS INFECTION
     Dosage: 200 MG / THREE TIMES PER DAY / UNKNO

REACTIONS (2)
  - Cushing^s syndrome [None]
  - Aspergillus infection [None]
